FAERS Safety Report 6524901-3 (Version None)
Quarter: 2010Q1

REPORT INFORMATION
  Report Type: 
  Country: None (occurrence: None)
  Receive Date: 20100104
  Receipt Date: 20091221
  Transmission Date: 20100710
  Serious: Yes (Other)
  Sender: FDA-Public Use
  Company Number: US-SANOFI-AVENTIS-2009SA006882

PATIENT
  Age: 67 Year
  Sex: Male

DRUGS (6)
  1. MULTAQ [Suspect]
     Route: 048
     Dates: start: 20090801, end: 20091001
  2. MULTAQ [Suspect]
     Route: 048
     Dates: start: 20091220
  3. DILTIAZEM [Concomitant]
     Route: 048
     Dates: end: 20090101
  4. DILTIAZEM [Concomitant]
     Route: 048
     Dates: start: 20090101
  5. LIPITOR [Concomitant]
  6. PRILOSEC [Concomitant]

REACTIONS (5)
  - ATRIAL FIBRILLATION [None]
  - BRADYCARDIA [None]
  - DIZZINESS [None]
  - DYSPNOEA EXERTIONAL [None]
  - HEART RATE [None]
